FAERS Safety Report 13140788 (Version 1)
Quarter: 2017Q1

REPORT INFORMATION
  Report Type: Spontaneous
  Country: US (occurrence: US)
  Receive Date: 20170123
  Receipt Date: 20170123
  Transmission Date: 20170428
  Serious: No
  Sender: FDA-Public Use
  Company Number: US-UNITED THERAPEUTICS-UNT-2016-016195

PATIENT
  Age: 44 Year
  Sex: Female
  Weight: 82.99 kg

DRUGS (2)
  1. REMODULIN [Suspect]
     Active Substance: TREPROSTINIL
     Indication: PULMONARY ARTERIAL HYPERTENSION
     Dosage: UNK
     Dates: start: 20150531
  2. REMODULIN [Suspect]
     Active Substance: TREPROSTINIL
     Indication: PULMONARY HYPERTENSION
     Dosage: 0.026 ?G/KG, CONTINUING
     Route: 041
     Dates: start: 20160727

REACTIONS (3)
  - Dermatitis contact [Unknown]
  - Eczema [Unknown]
  - Injection site irritation [Unknown]

NARRATIVE: CASE EVENT DATE: 201610
